FAERS Safety Report 7947931-3 (Version None)
Quarter: 2011Q4

REPORT INFORMATION
  Report Type: 
  Country: None (occurrence: None)
  Receive Date: 20111121
  Receipt Date: 20111111
  Transmission Date: 20120403
  Serious: Yes (Other)
  Sender: FDA-Public Use
  Company Number: 2011SP045311

PATIENT
  Age: 27 Year
  Sex: Female

DRUGS (1)
  1. IMPLANON [Suspect]
     Indication: CONTRACEPTION
     Dosage: ; SBDE
     Dates: start: 20110627, end: 20110922

REACTIONS (5)
  - HYPERTHYROIDISM [None]
  - POSTPARTUM DEPRESSION [None]
  - VITAMIN D DECREASED [None]
  - FACTOR V LEIDEN MUTATION [None]
  - HYPERCOAGULATION [None]
